FAERS Safety Report 17139088 (Version 1)
Quarter: 2019Q4

REPORT INFORMATION
  Report Type: Spontaneous
  Country: US (occurrence: US)
  Receive Date: 20191210
  Receipt Date: 20191210
  Transmission Date: 20200122
  Serious: Yes (Death)
  Sender: FDA-Public Use
  Company Number: None

PATIENT
  Sex: Female

DRUGS (9)
  1. MIRTAZAPINE 7.5MG [Concomitant]
     Active Substance: MIRTAZAPINE
  2. IBUPROFEN 800MG [Concomitant]
     Active Substance: IBUPROFEN
  3. GABAPENTIN 400MG [Concomitant]
     Active Substance: GABAPENTIN
  4. CAPECITABINE. [Suspect]
     Active Substance: CAPECITABINE
  5. ONDASENTRON 4MG [Concomitant]
  6. POTASSIUM CHLORIDE 20MEQ [Concomitant]
     Active Substance: POTASSIUM CHLORIDE
  7. OXYCODONE 10MG [Concomitant]
     Active Substance: OXYCODONE
  8. XARELTO 30MG [Concomitant]
  9. PREDNISONE 20MG [Concomitant]
     Active Substance: PREDNISONE

REACTIONS (1)
  - Death [None]
